FAERS Safety Report 11295273 (Version 1)
Quarter: 2015Q3

REPORT INFORMATION
  Report Type: Spontaneous
  Country: US (occurrence: None)
  Receive Date: 20150722
  Receipt Date: 20150722
  Transmission Date: 20151125
  Serious: Yes (Hospitalization)
  Sender: FDA-Public Use
  Company Number: None

PATIENT
  Age: 87 Year
  Sex: Male
  Weight: 60 kg

DRUGS (8)
  1. PROBIOTIC PRODUCT [Concomitant]
  2. ESCITALOPRAM (LEXAPRO) [Concomitant]
  3. DOXAZOSIN (CARDURA) [Concomitant]
  4. LOPERAMIDE (IMODIUM A-D) [Concomitant]
  5. WARFARIN 2.5 MG [Suspect]
     Active Substance: WARFARIN
     Indication: ATRIAL FIBRILLATION
     Route: 048
  6. HYDROCODONE-ACETAMINOPHEN (NORCO) [Concomitant]
  7. MULTIPLE VITAMINS-MINERALS [Concomitant]
  8. PROSCAR [Concomitant]
     Active Substance: FINASTERIDE

REACTIONS (6)
  - Weight decreased [None]
  - Epistaxis [None]
  - Irritable bowel syndrome [None]
  - Haematochezia [None]
  - Fall [None]
  - Diarrhoea [None]

NARRATIVE: CASE EVENT DATE: 20150720
